FAERS Safety Report 8576197-9 (Version None)
Quarter: 2012Q3

REPORT INFORMATION
  Report Type: 
  Country: None (occurrence: None)
  Receive Date: 20120725
  Receipt Date: 20120717
  Transmission Date: 20120928
  Serious: Yes (Other)
  Sender: FDA-Public Use
  Company Number: ACO_26516_2011

PATIENT
  Age: 55 Year
  Sex: Female
  Weight: 58 kg

DRUGS (10)
  1. VITAMIN C /00008001/ (ASCORBIC ACID) [Concomitant]
  2. PREMARIN [Concomitant]
  3. ACETAMINOPHEN [Concomitant]
  4. AMPYRA [Suspect]
     Indication: MULTIPLE SCLEROSIS
     Dosage: 10 MG, BID, ORAL
     Route: 048
     Dates: start: 20110811, end: 20110911
  5. TRIPLEX /00050502/ (TRIFLUOPERAZINE HYDROCHLORIDE) [Concomitant]
  6. IBUPROFEN [Concomitant]
  7. CALCIUM PLUS VITAMIN D (CALCIUM, COLECALCIFEROL) [Concomitant]
  8. METOPROLOL TARTRATE [Concomitant]
  9. VITAMIN B (VITAMIN B COMPLEX) [Concomitant]
  10. YEAST-GARD/01411801/ (CANDIDA ALBICANS, CANDIDA PARAPSILOSIS, PULSATIL [Concomitant]

REACTIONS (3)
  - DIZZINESS [None]
  - SUICIDAL IDEATION [None]
  - DEPRESSION [None]
